FAERS Safety Report 8848833 (Version 1)
Quarter: 2012Q4

REPORT INFORMATION
  Report Type: Spontaneous
  Country: US (occurrence: None)
  Receive Date: 20121017
  Receipt Date: 20121017
  Transmission Date: 20130627
  Serious: Yes (Other)
  Sender: FDA-Public Use
  Company Number: None

PATIENT
  Age: 24 Year
  Sex: Female
  Weight: 72.58 kg

DRUGS (1)
  1. MIRENA IUD [Suspect]
     Indication: BIRTH CONTROL
     Dosage: IUD, plastic
     Route: 015
     Dates: start: 20110107, end: 20110124

REACTIONS (3)
  - Procedural pain [None]
  - Abdominal pain [None]
  - Device dislocation [None]
